FAERS Safety Report 6117329-1 (Version None)
Quarter: 2009Q1

REPORT INFORMATION
  Report Type: 
  Country: None (occurrence: None)
  Receive Date: 20090314
  Receipt Date: 20090114
  Transmission Date: 20090719
  Serious: No
  Sender: FDA-Public Use
  Company Number: US-ABBOTT-09P-163-0497685-00

PATIENT
  Sex: Male

DRUGS (3)
  1. HUMIRA [Suspect]
     Indication: PSORIATIC ARTHROPATHY
     Dates: start: 20080529, end: 20080901
  2. HUMIRA [Suspect]
     Indication: RHEUMATOID ARTHRITIS
     Dates: start: 20080901, end: 20090101
  3. HUMIRA [Suspect]
     Dates: start: 20090101

REACTIONS (5)
  - COUGH [None]
  - NASAL CONGESTION [None]
  - NASOPHARYNGITIS [None]
  - PSORIASIS [None]
  - RHINORRHOEA [None]
